FAERS Safety Report 5312893-4 (Version None)
Quarter: 2007Q1

REPORT INFORMATION
  Report Type: 
  Country: None (occurrence: None)
  Receive Date: 20070201
  Receipt Date: 20061222
  Transmission Date: 20070707
  Serious: No
  Sender: FDA-Public Use
  Company Number: 259588

PATIENT
  Age: 40 Year
  Sex: Female
  Weight: 90.2 kg

DRUGS (3)
  1. LEVEMIR [Suspect]
     Indication: INSULIN-REQUIRING TYPE II DIABETES MELLITUS
     Dosage: SEE IMAGE
     Route: 058
     Dates: start: 20061207, end: 20061219
  2. LEVEMIR [Suspect]
     Indication: INSULIN-REQUIRING TYPE II DIABETES MELLITUS
     Dosage: SEE IMAGE
     Route: 058
     Dates: start: 20061220
  3. LORTAB [Suspect]
     Indication: PAIN
     Dosage: ORAL
     Route: 048
     Dates: start: 20061213, end: 20061220

REACTIONS (2)
  - INJECTION SITE PRURITUS [None]
  - RASH [None]
